FAERS Safety Report 8284166-1 (Version None)
Quarter: 2012Q2

REPORT INFORMATION
  Report Type: 
  Country: None (occurrence: None)
  Receive Date: 20120413
  Receipt Date: 20111103
  Transmission Date: 20120825
  Serious: No
  Sender: FDA-Public Use
  Company Number: US-ASTRAZENECA-2011SE66782

PATIENT
  Sex: Male
  Weight: 113.4 kg

DRUGS (17)
  1. SEROQUEL XR [Suspect]
     Indication: ANXIETY
     Route: 048
  2. SEROQUEL XR [Suspect]
     Indication: SLEEP DISORDER
     Route: 048
  3. SEROQUEL XR [Suspect]
     Indication: BIPOLAR DISORDER
     Route: 048
  4. CYMBALTA [Concomitant]
  5. HYDROCHLOROTHIAZIDE [Concomitant]
  6. INVEGA [Concomitant]
  7. SEROQUEL XR [Suspect]
     Indication: NERVOUSNESS
     Route: 048
  8. CRICOR [Concomitant]
     Indication: BLOOD CHOLESTEROL ABNORMAL
  9. TROTRANOLOLSH [Concomitant]
  10. NEURONTIN [Concomitant]
  11. NEXIUM [Suspect]
     Route: 048
  12. TRAZONE [Concomitant]
  13. GUANFACINE HYDROCHLORIDE [Concomitant]
  14. SEROQUEL XR [Suspect]
     Indication: PARANOIA
     Route: 048
  15. SEROQUEL XR [Suspect]
     Indication: ANGER
     Route: 048
  16. HYDROCODONE BITARTRATE [Concomitant]
  17. CYCLODEZATER [Concomitant]

REACTIONS (3)
  - OESOPHAGEAL ULCER [None]
  - GASTRIC ULCER [None]
  - OFF LABEL USE [None]
